FAERS Safety Report 7834219-4 (Version None)
Quarter: 2011Q4

REPORT INFORMATION
  Report Type: 
  Country: None (occurrence: None)
  Receive Date: 20111024
  Receipt Date: 20111017
  Transmission Date: 20120403
  Serious: Yes (Death, Hospitalization, Other)
  Sender: FDA-Public Use
  Company Number: PHHY2011JP91961

PATIENT
  Sex: Male

DRUGS (16)
  1. SLOWHEIM [Concomitant]
     Route: 048
  2. DORAL [Concomitant]
     Route: 048
  3. HALOPERIDOL [Suspect]
     Route: 048
  4. PROMAZINE HYDROCHLORIDE [Concomitant]
     Route: 048
  5. VALPROIC ACID [Concomitant]
     Route: 048
  6. SOFMIN [Concomitant]
     Route: 048
  7. TOLOPELON [Concomitant]
     Route: 048
  8. RISPERDAL [Concomitant]
     Route: 048
  9. ZYPREXA [Concomitant]
     Route: 048
  10. SEROQUEL [Concomitant]
     Route: 048
  11. LODOPIN [Concomitant]
     Route: 048
  12. TEGRETOL [Suspect]
     Route: 048
  13. TIMIPERONE [Concomitant]
     Route: 048
  14. PROMETHAZINE HCL [Concomitant]
     Route: 048
  15. PHENOBARBITAL TAB [Concomitant]
     Route: 048
  16. CLARITHROMYCIN [Concomitant]
     Route: 048

REACTIONS (6)
  - ILEUS [None]
  - CARDIO-RESPIRATORY ARREST [None]
  - PYREXIA [None]
  - RESPIRATORY DEPRESSION [None]
  - BLOOD CREATINE PHOSPHOKINASE INCREASED [None]
  - APALLIC SYNDROME [None]
